FAERS Safety Report 9293527 (Version 3)
Quarter: 2016Q2

REPORT INFORMATION
  Report Type: Report from Study
  Country: BE (occurrence: BE)
  Receive Date: 20130516
  Receipt Date: 20160510
  Transmission Date: 20160815
  Serious: Yes (Hospitalization)
  Sender: FDA-Public Use
  Company Number: PHHO2013BE005839

PATIENT
  Age: 81 Year
  Sex: Male
  Weight: 79 kg

DRUGS (9)
  1. ALISKIREN [Suspect]
     Active Substance: ALISKIREN
     Indication: CARDIAC FAILURE CHRONIC
     Dosage: 300 MG, BID
     Route: 048
     Dates: start: 20110503, end: 20110516
  2. MAREVAN [Concomitant]
     Active Substance: WARFARIN SODIUM
     Indication: ATRIAL FIBRILLATION
     Dosage: PER INR, QD
     Route: 048
     Dates: start: 20110428
  3. ALISKIREN [Suspect]
     Active Substance: ALISKIREN
     Dosage: 300 MG, BID
     Route: 048
     Dates: start: 20110517, end: 20130425
  4. ENALAPRIL [Suspect]
     Active Substance: ENALAPRIL
     Dosage: 10 MG, BID
     Route: 048
     Dates: start: 20110517, end: 20130425
  5. ALDACTONE [Suspect]
     Active Substance: SPIRONOLACTONE
     Indication: CARDIAC FAILURE CHRONIC
     Dosage: 25 MG, QD
     Route: 048
     Dates: start: 20110426, end: 20130425
  6. ENALAPRIL [Suspect]
     Active Substance: ENALAPRIL
     Indication: CARDIAC FAILURE
     Dosage: 10 MG, BID
     Route: 048
     Dates: start: 20110503, end: 20110516
  7. BURINEX [Suspect]
     Active Substance: BUMETANIDE
     Indication: CARDIAC FAILURE CHRONIC
     Dosage: 1 MG, QD
     Route: 048
     Dates: start: 20121114
  8. HYDRALAZINE [Suspect]
     Active Substance: HYDRALAZINE HYDROCHLORIDE
     Indication: CARDIAC FAILURE CHRONIC
     Dosage: 12.5 MG, TID
     Route: 048
     Dates: start: 20121214, end: 20130425
  9. SIMVASTATIN. [Concomitant]
     Active Substance: SIMVASTATIN
     Indication: CARDIOVASCULAR DISORDER
     Dosage: 40 MG, QD
     Route: 048
     Dates: end: 20130425

REACTIONS (1)
  - Renal impairment [Recovering/Resolving]

NARRATIVE: CASE EVENT DATE: 20130426
